FAERS Safety Report 18196480 (Version 1)
Quarter: 2020Q3

REPORT INFORMATION
  Report Type: Spontaneous
  Country: US (occurrence: US)
  Receive Date: 20200825
  Receipt Date: 20200825
  Transmission Date: 20201103
  Serious: Yes (Other)
  Sender: FDA-Public Use
  Company Number: None

PATIENT
  Age: 23 Year
  Sex: Male

DRUGS (5)
  1. ACETAMINOPHEN. [Concomitant]
     Active Substance: ACETAMINOPHEN
  2. SPRYCEL [Suspect]
     Active Substance: DASATINIB
     Indication: CHRONIC MYELOID LEUKAEMIA
     Route: 048
     Dates: start: 20200301, end: 20200701
  3. DOXEPIN [Concomitant]
     Active Substance: DOXEPIN
  4. DULOXETINE. [Concomitant]
     Active Substance: DULOXETINE
  5. PANTOPRAZOLE [Concomitant]
     Active Substance: PANTOPRAZOLE

REACTIONS (3)
  - Therapy cessation [None]
  - Headache [None]
  - Fatigue [None]

NARRATIVE: CASE EVENT DATE: 20200825
